FAERS Safety Report 6772260-3 (Version None)
Quarter: 2010Q2

REPORT INFORMATION
  Report Type: 
  Country: None (occurrence: None)
  Receive Date: 20100616
  Receipt Date: 20100415
  Transmission Date: 20101027
  Serious: No
  Sender: FDA-Public Use
  Company Number: US-ASTRAZENECA-2010SE11362

PATIENT
  Age: 6 Year
  Sex: Female

DRUGS (1)
  1. PULMIICORT FLEXHALER [Suspect]
     Dosage: 180 UG
     Route: 055

REACTIONS (2)
  - ASTHMA [None]
  - DRUG DOSE OMISSION [None]
